APPROVED DRUG PRODUCT: IQUIX
Active Ingredient: LEVOFLOXACIN
Strength: 1.5% **Federal Register determination that product was not discontinued or withdrawn for safety or effectiveness reasons**
Dosage Form/Route: SOLUTION/DROPS;OPHTHALMIC
Application: N021571 | Product #001
Applicant: SANTEN INC
Approved: Mar 1, 2004 | RLD: Yes | RS: No | Type: DISCN